FAERS Safety Report 11116110 (Version 1)
Quarter: 2015Q2

REPORT INFORMATION
  Report Type: Spontaneous
  Country: US (occurrence: None)
  Receive Date: 20150514
  Receipt Date: 20150514
  Transmission Date: 20150821
  Serious: Yes (Life-Threatening, Hospitalization)
  Sender: FDA-Public Use
  Company Number: None

PATIENT
  Age: 82 Year
  Sex: Male
  Weight: 119.1 kg

DRUGS (6)
  1. ASPIRIN. [Suspect]
     Active Substance: ASPIRIN
     Indication: CORONARY ARTERIAL STENT INSERTION
     Route: 048
     Dates: start: 20120724
  2. CLOPIDOGREL [Suspect]
     Active Substance: CLOPIDOGREL BISULFATE
     Indication: ARTERIAL RESTENOSIS
     Route: 048
     Dates: start: 20150211, end: 20150331
  3. ASPIRIN. [Suspect]
     Active Substance: ASPIRIN
     Indication: ARTERIAL RESTENOSIS
     Route: 048
     Dates: start: 20120724
  4. ASPIRIN. [Suspect]
     Active Substance: ASPIRIN
     Indication: ANGIOPLASTY
     Route: 048
     Dates: start: 20120724
  5. CLOPIDOGREL [Suspect]
     Active Substance: CLOPIDOGREL BISULFATE
     Indication: CORONARY ARTERIAL STENT INSERTION
     Route: 048
     Dates: start: 20150211, end: 20150331
  6. CLOPIDOGREL [Suspect]
     Active Substance: CLOPIDOGREL BISULFATE
     Indication: ANGIOPLASTY
     Route: 048
     Dates: start: 20150211, end: 20150331

REACTIONS (1)
  - Haemorrhage [None]

NARRATIVE: CASE EVENT DATE: 20150328
